FAERS Safety Report 9386004 (Version 1)
Quarter: 2013Q3

REPORT INFORMATION
  Report Type: Spontaneous
  Country: US (occurrence: US)
  Receive Date: 20130705
  Receipt Date: 20130705
  Transmission Date: 20140515
  Serious: Yes (Other)
  Sender: FDA-Public Use
  Company Number: US-BAXTER-2013BAX026254

PATIENT
  Sex: 0

DRUGS (1)
  1. 5% DEXTROSE INJECTION [Suspect]
     Indication: FOETAL EXPOSURE TIMING UNSPECIFIED
     Dosage: 10 TO 14.9 GRAMS
     Route: 015

REACTIONS (2)
  - Foetal exposure during pregnancy [Unknown]
  - Hypoglycaemia [Unknown]
